FAERS Safety Report 7677859-8 (Version None)
Quarter: 2011Q3

REPORT INFORMATION
  Report Type: 
  Country: None (occurrence: None)
  Receive Date: 20110811
  Receipt Date: 20110805
  Transmission Date: 20111222
  Serious: Yes (Hospitalization)
  Sender: FDA-Public Use
  Company Number: US-MERCK-1105USA01170

PATIENT
  Age: 59 Year
  Sex: Female

DRUGS (31)
  1. PREMPRO [Concomitant]
     Indication: MENOPAUSE
     Route: 065
     Dates: end: 20100501
  2. HORMONES (UNSPECIFIED) [Concomitant]
     Indication: MENOPAUSE
     Route: 065
     Dates: start: 19900101, end: 20110501
  3. ASCORBIC ACID [Concomitant]
     Route: 065
     Dates: start: 19910101
  4. IBUPROFEN [Concomitant]
     Route: 065
  5. ALENDRONATE SODIUM [Suspect]
     Route: 048
     Dates: start: 20080416, end: 20081003
  6. OXYCONTIN [Concomitant]
     Indication: BACK PAIN
     Route: 065
     Dates: start: 20010101, end: 20031201
  7. MAGNESIUM (UNSPECIFIED) [Concomitant]
     Route: 065
     Dates: start: 19910101
  8. DURAGESIC-100 [Concomitant]
     Indication: BACK PAIN
     Route: 065
     Dates: start: 20040201, end: 20051201
  9. FLONASE [Concomitant]
     Indication: SINUS DISORDER
     Route: 065
     Dates: start: 20040316, end: 20040615
  10. IRON (UNSPECIFIED) [Concomitant]
     Route: 065
     Dates: start: 19910101
  11. HYDROCODONE BITARTRATE AND ACETAMINOPHEN [Concomitant]
     Indication: BACK PAIN
     Route: 065
     Dates: start: 20010101, end: 20031201
  12. FLONASE [Concomitant]
     Indication: HYPERSENSITIVITY
     Route: 065
     Dates: start: 20040316, end: 20040615
  13. VITAMIN D (UNSPECIFIED) [Concomitant]
     Route: 065
     Dates: start: 19910101
  14. RESVERATROL [Concomitant]
     Route: 065
     Dates: start: 20090101
  15. FOSAMAX [Suspect]
     Indication: OSTEOPOROSIS
     Route: 048
     Dates: start: 19980101, end: 20100401
  16. CELEBREX [Concomitant]
     Indication: OSTEOARTHRITIS
     Route: 065
  17. OMEGA-3 MARINE TRIGLYCERIDES [Concomitant]
     Route: 065
     Dates: start: 19910101
  18. BEXTRA [Concomitant]
     Indication: OSTEOARTHRITIS
     Route: 065
     Dates: end: 20050101
  19. METHADONE HYDROCHLORIDE [Concomitant]
     Indication: BACK PAIN
     Route: 065
     Dates: start: 20051201, end: 20100301
  20. SINGULAIR [Concomitant]
     Indication: HYPERSENSITIVITY
     Route: 048
     Dates: start: 20040316
  21. VITAMINS (UNSPECIFIED) [Concomitant]
     Route: 065
     Dates: start: 19860101
  22. LYSINE HYDROCHLORIDE [Concomitant]
     Route: 065
     Dates: start: 19910101
  23. CALCIUM (UNSPECIFIED) [Concomitant]
     Route: 065
     Dates: start: 19910101
  24. FOLIC ACID [Concomitant]
     Route: 065
     Dates: start: 19910101
  25. UBIDECARENONE [Concomitant]
     Route: 065
     Dates: start: 20070101
  26. TOPROL-XL [Concomitant]
     Indication: HYPERTENSION
     Route: 065
     Dates: start: 20030129, end: 20030206
  27. MENTAX [Concomitant]
     Indication: HYPERSENSITIVITY
     Route: 065
     Dates: start: 20040517
  28. CHOLECALCIFEROL [Concomitant]
     Route: 065
     Dates: start: 19910101
  29. POLYSACCHARIDE IRON COMPLEX [Concomitant]
     Route: 065
     Dates: start: 19910101
  30. ALAVERT [Concomitant]
     Route: 065
  31. ALENDRONATE SODIUM [Suspect]
     Route: 048
     Dates: start: 20081215, end: 20091117

REACTIONS (17)
  - CONSTIPATION [None]
  - MUSCLE SPASMS [None]
  - FEMUR FRACTURE [None]
  - BONE DEFORMITY [None]
  - CARDIOVASCULAR DISORDER [None]
  - PHARYNGITIS [None]
  - INTERVERTEBRAL DISC PROTRUSION [None]
  - LEUKOCYTOSIS [None]
  - HYPERHIDROSIS [None]
  - FALL [None]
  - NAUSEA [None]
  - RESPIRATORY TRACT INFECTION [None]
  - HYPERTENSION [None]
  - OSTEOPENIA [None]
  - HYPOKALAEMIA [None]
  - DIZZINESS [None]
  - RIB FRACTURE [None]
